FAERS Safety Report 8303460-9 (Version None)
Quarter: 2012Q2

REPORT INFORMATION
  Report Type: 
  Country: None (occurrence: None)
  Receive Date: 20120423
  Receipt Date: 20120418
  Transmission Date: 20120825
  Serious: Yes (Other)
  Sender: FDA-Public Use
  Company Number: US-PFIZER INC-2012068335

PATIENT

DRUGS (3)
  1. CHANTIX [Suspect]
     Dosage: 1 MG, UNK
  2. ZOLOFT [Suspect]
     Dosage: 50 MG, 1X/DAY
  3. CHANTIX [Suspect]
     Dosage: UNK

REACTIONS (1)
  - MYOCARDIAL INFARCTION [None]
